FAERS Safety Report 5962569-5 (Version None)
Quarter: 2008Q4

REPORT INFORMATION
  Report Type: 
  Country: None (occurrence: None)
  Receive Date: 20081121
  Receipt Date: 20081112
  Transmission Date: 20090506
  Serious: Yes (Hospitalization, Other)
  Sender: FDA-Public Use
  Company Number: DE-PFIZER INC-2008095857

PATIENT
  Age: 20 Year
  Sex: Male
  Weight: 78 kg

DRUGS (2)
  1. ZELDOX (CAPSULES) [Suspect]
     Indication: SCHIZOPHRENIA
     Dosage: DAILY DOSE:280MG
     Dates: start: 20080515, end: 20080902
  2. EDRONAX [Suspect]
     Dosage: DAILY DOSE:8MG
     Dates: start: 20080618

REACTIONS (3)
  - AKATHISIA [None]
  - DIZZINESS [None]
  - NERVOUS SYSTEM DISORDER [None]
